FAERS Safety Report 10995103 (Version 1)
Quarter: 2015Q2

REPORT INFORMATION
  Report Type: Spontaneous
  Country: US (occurrence: US)
  Receive Date: 20150407
  Receipt Date: 20150407
  Transmission Date: 20150821
  Serious: Yes (Death, Hospitalization)
  Sender: FDA-Public Use
  Company Number: US-BAYER-2015-091087

PATIENT
  Sex: Male

DRUGS (1)
  1. MIRENA [Suspect]
     Active Substance: LEVONORGESTREL
     Route: 064

REACTIONS (5)
  - Injury [Fatal]
  - Premature baby [Fatal]
  - Adverse event [None]
  - Foetal exposure during pregnancy [None]
  - Pain [Fatal]

NARRATIVE: CASE EVENT DATE: 201402
